FAERS Safety Report 5552872-5 (Version None)
Quarter: 2007Q4

REPORT INFORMATION
  Report Type: 
  Country: None (occurrence: None)
  Receive Date: 20071210
  Receipt Date: 20071127
  Transmission Date: 20080405
  Serious: Yes (Hospitalization)
  Sender: FDA-Public Use
  Company Number: 2007S1012515

PATIENT
  Age: 60 Year
  Sex: Female

DRUGS (9)
  1. AZATHIOPRINE [Suspect]
     Indication: DRUG USE FOR UNKNOWN INDICATION
     Dates: end: 20070304
  2. REMICADE [Suspect]
     Indication: RHEUMATOID ARTHRITIS
     Dosage: INTRAVENOUS
     Route: 042
     Dates: start: 20070419
  3. AMITRIPTYLINE HCL [Concomitant]
  4. ATENOLOL [Concomitant]
  5. ATORVASTATIN CALCIUM [Concomitant]
  6. HUMULIN I (INSULIN HUMAN INJECTION, ISOPHANE) [Concomitant]
  7. MESALAMINE [Concomitant]
  8. PANADEINE (PANADEINE CO) [Concomitant]
  9. LANSOPRAZOLE [Concomitant]

REACTIONS (1)
  - DYSPNOEA [None]
